FAERS Safety Report 8887238 (Version 2)
Quarter: 2012Q4

REPORT INFORMATION
  Report Type: Report from Study
  Country: PL (occurrence: PL)
  Receive Date: 20121101
  Receipt Date: 20121121
  Transmission Date: 20130627
  Serious: Yes (Hospitalization)
  Sender: FDA-Public Use
  Company Number: PL-ROCHE-1151197

PATIENT
  Age: 49 Year
  Sex: Female

DRUGS (2)
  1. RITUXIMAB [Suspect]
     Indication: NEOPLASM MALIGNANT
     Dosage: 6 cycle
     Route: 042
     Dates: start: 20100806, end: 20110118
  2. RITUXIMAB [Suspect]
     Dosage: 8 cycle
     Route: 042
     Dates: start: 20110314

REACTIONS (1)
  - Tumour excision [Recovered/Resolved]
